FAERS Safety Report 8191296-1 (Version None)
Quarter: 2012Q1

REPORT INFORMATION
  Report Type: 
  Country: None (occurrence: None)
  Receive Date: 20120307
  Receipt Date: 20120305
  Transmission Date: 20120608
  Serious: Yes (Other)
  Sender: FDA-Public Use
  Company Number: ZA-ABBOTT-12P-143-0906769-00

PATIENT
  Sex: Female

DRUGS (7)
  1. NITROXIN [Concomitant]
     Indication: PRODUCT USED FOR UNKNOWN INDICATION
  2. PREDNISONE TAB [Concomitant]
     Indication: JUVENILE ARTHRITIS
  3. HUMIRA [Suspect]
     Indication: JUVENILE ARTHRITIS
     Route: 058
     Dates: start: 20100801
  4. METHOTREXATE [Concomitant]
     Indication: JUVENILE ARTHRITIS
  5. SIMVACOR [Concomitant]
     Indication: PRODUCT USED FOR UNKNOWN INDICATION
  6. TRAMADOL HCL [Concomitant]
     Indication: JUVENILE ARTHRITIS
  7. FOLIC ACID [Concomitant]
     Indication: VITAMIN SUPPLEMENTATION

REACTIONS (6)
  - DECREASED APPETITE [None]
  - DEHYDRATION [None]
  - COUGH [None]
  - PULMONARY OEDEMA [None]
  - PYREXIA [None]
  - NIGHT SWEATS [None]
